FAERS Safety Report 18722950 (Version 2)
Quarter: 2021Q2

REPORT INFORMATION
  Report Type: Spontaneous
  Country: US (occurrence: US)
  Receive Date: 20210111
  Receipt Date: 20210409
  Transmission Date: 20210717
  Serious: No
  Sender: FDA-Public Use
  Company Number: US-SA-2021SA003764

PATIENT
  Age: 57 Year
  Sex: Male

DRUGS (1)
  1. DUPIXENT [Suspect]
     Active Substance: DUPILUMAB
     Indication: DERMATITIS
     Dosage: 300 MG, QOW
     Route: 058
     Dates: start: 20201210

REACTIONS (6)
  - Insomnia [Unknown]
  - Skin irritation [Unknown]
  - Pain of skin [Unknown]
  - Product use in unapproved indication [Unknown]
  - Dermatitis [Unknown]
  - Rash [Unknown]

NARRATIVE: CASE EVENT DATE: 20201210
